FAERS Safety Report 7348733-1 (Version None)
Quarter: 2011Q1

REPORT INFORMATION
  Report Type: 
  Country: None (occurrence: None)
  Receive Date: 20110314
  Receipt Date: 20070824
  Transmission Date: 20110831
  Serious: No
  Sender: FDA-Public Use
  Company Number: 2007BI018128

PATIENT
  Age: 63 Year
  Sex: Male

DRUGS (2)
  1. TYSABRI [Suspect]
     Indication: MULTIPLE SCLEROSIS
     Route: 042
     Dates: start: 20061011, end: 20081124
  2. TYSABRI [Suspect]
     Route: 042
     Dates: start: 20040701, end: 20060701

REACTIONS (8)
  - MULTIPLE SCLEROSIS RELAPSE [None]
  - HEADACHE [None]
  - DEPRESSION [None]
  - APHASIA [None]
  - AMNESIA [None]
  - SUICIDAL IDEATION [None]
  - ANXIETY [None]
  - ASTHENIA [None]
